FAERS Safety Report 24382970 (Version 3)
Quarter: 2025Q2

REPORT INFORMATION
  Report Type: Report from Study
  Country: CA (occurrence: CA)
  Receive Date: 20241001
  Receipt Date: 20250416
  Transmission Date: 20250717
  Serious: Yes (Hospitalization, Other)
  Sender: JOHNSON AND JOHNSON
  Company Number: CA-JNJFOC-20240114935

PATIENT
  Age: 10 Year
  Sex: Male

DRUGS (2)
  1. REMICADE [Suspect]
     Active Substance: INFLIXIMAB
     Indication: Colitis ulcerative
     Route: 041
  2. REMICADE [Suspect]
     Active Substance: INFLIXIMAB
     Route: 041
     Dates: start: 20240119

REACTIONS (8)
  - Back pain [Recovering/Resolving]
  - Haematochezia [Unknown]
  - Headache [Recovered/Resolved]
  - Pyrexia [Recovered/Resolved]
  - Diarrhoea [Not Recovered/Not Resolved]
  - Therapeutic response decreased [Unknown]
  - Off label use [Unknown]
  - Pain [Recovering/Resolving]

NARRATIVE: CASE EVENT DATE: 20240921
